FAERS Safety Report 7715481-5 (Version None)
Quarter: 2011Q3

REPORT INFORMATION
  Report Type: 
  Country: None (occurrence: None)
  Receive Date: 20110829
  Receipt Date: 20110815
  Transmission Date: 20111222
  Serious: Yes (Other)
  Sender: FDA-Public Use
  Company Number: US-UCBSA-036081

PATIENT
  Sex: Male

DRUGS (3)
  1. GLIMEPIRIDE [Concomitant]
     Indication: TYPE 2 DIABETES MELLITUS
     Route: 048
  2. MERCAPTOPURINE [Concomitant]
     Indication: CROHN'S DISEASE
  3. CIMZIA [Suspect]
     Indication: CROHN'S DISEASE
     Route: 058
     Dates: start: 20090102, end: 20110501

REACTIONS (2)
  - EYE INFLAMMATION [None]
  - SQUAMOUS CELL CARCINOMA [None]
